FAERS Safety Report 12483719 (Version 2)
Quarter: 2016Q3

REPORT INFORMATION
  Report Type: Spontaneous
  Country: US (occurrence: US)
  Receive Date: 20160621
  Receipt Date: 20160816
  Transmission Date: 20161109
  Serious: No
  Sender: FDA-Public Use
  Company Number: US-ASTRAZENECA-2016SE53544

PATIENT
  Sex: Female
  Weight: 61.7 kg

DRUGS (5)
  1. PULMICORT FLEXHALER [Suspect]
     Active Substance: BUDESONIDE
     Indication: ASTHMA
     Dosage: 90 MCG 2 PUFFS TWICE A DAY
     Route: 055
  2. ALBUTEROL INHALER [Concomitant]
     Active Substance: ALBUTEROL
     Indication: DYSPNOEA
     Dosage: 1 TO 2 PUFFS QID PRN
     Route: 055
  3. VALIUM [Concomitant]
     Active Substance: DIAZEPAM
     Indication: PANIC DISORDER
     Dosage: 1 MG ONE AND A HALF TAB OD
  4. VALIUM [Concomitant]
     Active Substance: DIAZEPAM
     Indication: ANXIETY DISORDER
     Dosage: 1 MG ONE AND A HALF TAB OD
  5. IPATROPIUM [Concomitant]

REACTIONS (4)
  - Gait disturbance [Unknown]
  - Drug dose omission [Unknown]
  - Device failure [Unknown]
  - Dyspnoea [Unknown]
